FAERS Safety Report 4915223-2 (Version None)
Quarter: 2006Q1

REPORT INFORMATION
  Report Type: 
  Country: None (occurrence: None)
  Receive Date: 20060216
  Receipt Date: 20060216
  Transmission Date: 20060701
  Serious: Yes (Hospitalization)
  Sender: FDA-Public Use
  Company Number: None

PATIENT
  Sex: Male
  Weight: 102.0593 kg

DRUGS (12)
  1. NIACIN [Suspect]
     Indication: BLOOD CHOLESTEROL
     Dosage: PO
     Route: 048
  2. TOPROL-XL [Concomitant]
  3. NEURONTIN [Concomitant]
  4. ACTOS [Concomitant]
  5. FLOMAX [Concomitant]
  6. METFORMIN [Concomitant]
  7. NEXIUM [Concomitant]
  8. LIPITOR [Concomitant]
  9. ZETIA [Concomitant]
  10. ASPIRIN [Concomitant]
  11. GLIPIZIDE ER [Concomitant]
  12. ACCURETIC [Concomitant]

REACTIONS (1)
  - RASH [None]
